FAERS Safety Report 4561928-5 (Version None)
Quarter: 2005Q1

REPORT INFORMATION
  Report Type: 
  Country: None (occurrence: None)
  Receive Date: 20050126
  Receipt Date: 20040720
  Transmission Date: 20050727
  Serious: Yes (Hospitalization, Other)
  Sender: FDA-Public Use
  Company Number: US-MERCK-0407USA01749

PATIENT
  Age: 50 Year
  Sex: Female
  Weight: 67 kg

DRUGS (20)
  1. VIOXX [Suspect]
     Indication: PAIN
     Route: 048
     Dates: start: 20000701, end: 20020128
  2. VIOXX [Suspect]
     Route: 048
  3. VIOXX [Suspect]
     Indication: FACET JOINT SYNDROME
     Route: 048
     Dates: start: 20000701, end: 20020128
  4. VIOXX [Suspect]
     Route: 048
  5. ASPIRIN [Concomitant]
     Indication: CEREBROVASCULAR ACCIDENT PROPHYLAXIS
     Route: 048
  6. MOTRIN [Concomitant]
     Route: 048
     Dates: start: 20020701, end: 20021101
  7. TYLENOL [Concomitant]
     Route: 048
     Dates: start: 20020701, end: 20021101
  8. BUTALBITAL [Concomitant]
     Route: 048
  9. GUAIFENEX [Concomitant]
     Route: 048
  10. CLIDINIUM BROMIDE [Concomitant]
     Route: 048
  11. ESTROPIPATE [Concomitant]
     Route: 048
  12. CLARITIN-D [Concomitant]
     Route: 048
  13. SKELAXIN [Concomitant]
     Route: 048
  14. KETOCONAZOLE [Concomitant]
     Route: 048
  15. PREDNISONE [Concomitant]
     Route: 048
  16. BIAXIN [Concomitant]
     Route: 048
  17. DIFLUCAN [Concomitant]
     Route: 065
  18. TRIMOX [Concomitant]
     Route: 048
  19. HYDROCODONE BITARTRATE [Concomitant]
     Route: 048
  20. DIOVAN [Concomitant]
     Route: 048

REACTIONS (41)
  - ABDOMINAL DISTENSION [None]
  - ABDOMINAL PAIN [None]
  - ARTHRALGIA [None]
  - ARTHROPOD BITE [None]
  - BACK PAIN [None]
  - CEREBROVASCULAR ACCIDENT [None]
  - CERVICAL CORD COMPRESSION [None]
  - COLITIS VIRAL [None]
  - COLONIC POLYP [None]
  - DIVERTICULITIS [None]
  - DIZZINESS [None]
  - DYSPEPSIA [None]
  - DYSPHAGIA [None]
  - DYSPHONIA [None]
  - DYSPNOEA [None]
  - EMOTIONAL DISTRESS [None]
  - FACET JOINT SYNDROME [None]
  - FATIGUE [None]
  - FLATULENCE [None]
  - HEADACHE [None]
  - HYPOAESTHESIA [None]
  - INSOMNIA [None]
  - INTERVERTEBRAL DISC DISORDER [None]
  - INTERVERTEBRAL DISC PROTRUSION [None]
  - IRRITABLE BOWEL SYNDROME [None]
  - JOINT STIFFNESS [None]
  - NAUSEA [None]
  - NECK PAIN [None]
  - PAIN IN EXTREMITY [None]
  - PARAESTHESIA [None]
  - RADICULOPATHY [None]
  - ROAD TRAFFIC ACCIDENT [None]
  - SPINAL COLUMN STENOSIS [None]
  - SWELLING [None]
  - SWELLING FACE [None]
  - THERAPY NON-RESPONDER [None]
  - TINNITUS [None]
  - VERTIGO [None]
  - VOCAL CORD THICKENING [None]
  - WEIGHT DECREASED [None]
  - WEIGHT INCREASED [None]
